FAERS Safety Report 4331816-8 (Version None)
Quarter: 2004Q2

REPORT INFORMATION
  Report Type: 
  Country: None (occurrence: None)
  Receive Date: 20040405
  Receipt Date: 20031002
  Transmission Date: 20050107
  Serious: No
  Sender: FDA-Public Use
  Company Number: US-GLAXOSMITHKLINE-A0428431A

PATIENT
  Age: 78 Year
  Sex: Male

DRUGS (2)
  1. FLOVENT [Suspect]
     Indication: ILL-DEFINED DISORDER
     Dosage: 110MCG TWICE PER DAY
     Route: 055
  2. SEREVENT [Concomitant]

REACTIONS (2)
  - HOARSENESS [None]
  - PARAESTHESIA [None]
